FAERS Safety Report 4425897-0 (Version None)
Quarter: 2004Q3

REPORT INFORMATION
  Report Type: 
  Country: None (occurrence: None)
  Receive Date: 20040810
  Receipt Date: 20040723
  Transmission Date: 20050211
  Serious: Yes (Other)
  Sender: FDA-Public Use
  Company Number: PHNU2004DE02641

PATIENT
  Age: 77 Year
  Sex: Male

DRUGS (3)
  1. VISUDYNE [Suspect]
     Indication: MACULAR DEGENERATION
     Dates: start: 20031001, end: 20031001
  2. VISUDYNE [Suspect]
     Indication: MACULAR DEGENERATION
     Dates: start: 20040227, end: 20040224
  3. FLUORESCEIN [Concomitant]

REACTIONS (3)
  - RETINAL HAEMORRHAGE [None]
  - RETINAL SCAR [None]
  - VISUAL ACUITY REDUCED [None]
